FAERS Safety Report 7902970-3 (Version None)
Quarter: 2011Q4

REPORT INFORMATION
  Report Type: 
  Country: None (occurrence: None)
  Receive Date: 20111109
  Receipt Date: 20100421
  Transmission Date: 20120403
  Serious: No
  Sender: FDA-Public Use
  Company Number: US-BAYER-201020247NA

PATIENT
  Sex: Female

DRUGS (1)
  1. CLIMARA [Suspect]
     Dosage: 0.1 MG/24HR, UNK
     Route: 062
     Dates: start: 20091101

REACTIONS (5)
  - TEARFULNESS [None]
  - NAUSEA [None]
  - PREMENSTRUAL SYNDROME [None]
  - FEELING HOT [None]
  - BACK PAIN [None]
